FAERS Safety Report 23997657 (Version 2)
Quarter: 2024Q3

REPORT INFORMATION
  Report Type: Spontaneous
  Country: CA (occurrence: CA)
  Receive Date: 20240621
  Receipt Date: 20240822
  Transmission Date: 20241017
  Serious: Yes (Other)
  Sender: CELLTRION
  Company Number: CA-PFIZER INC-202300457524

PATIENT

DRUGS (8)
  1. INFLECTRA [Suspect]
     Active Substance: INFLIXIMAB-DYYB
     Indication: Colitis ulcerative
     Dosage: 700 MG, WEEK 0 IN HOSPITAL AT Q 0,2,6 THEN EVERY 8 WEEKS, (10 MG/KG)
     Route: 042
     Dates: start: 20231112
  2. INFLECTRA [Suspect]
     Active Substance: INFLIXIMAB-DYYB
     Dosage: 700 MG, WEEK 0 IN HOSPITAL AT Q 0,2,6 THEN EVERY 8 WEEKS
     Route: 042
     Dates: start: 20231129
  3. INFLECTRA [Suspect]
     Active Substance: INFLIXIMAB-DYYB
     Dosage: 700 MG, WEEK 0 IN HOSPITAL AT Q 0,2,6 THEN EVERY 8 WEEKS (WEEK 6)
     Route: 042
     Dates: start: 20231227
  4. INFLECTRA [Suspect]
     Active Substance: INFLIXIMAB-DYYB
     Dosage: 700 MG, WEEK 0 IN HOSPITAL AT Q 0,2,6 THEN EVERY 8 WEEKS (7 WEEKS 6 DAYS)
     Route: 042
     Dates: start: 20240220
  5. INFLECTRA [Suspect]
     Active Substance: INFLIXIMAB-DYYB
     Dosage: 700 MG, WEEK 0 (10 MG/KG) IN HOSPITAL AT Q 0,2,6 THEN EVERY 8 WEEKS
     Route: 042
     Dates: start: 20240417
  6. INFLECTRA [Suspect]
     Active Substance: INFLIXIMAB-DYYB
     Dosage: 700 MG, WEEK 0 (10 MG/KG) IN HOSPITAL AT Q 0,2,6 THEN EVERY 8 WEEKS
     Route: 042
     Dates: start: 20240417
  7. BUDESONIDE [Concomitant]
     Active Substance: BUDESONIDE
     Dosage: 1 DF
  8. PREDNISONE [Concomitant]
     Active Substance: PREDNISONE
     Dosage: 1 DF

REACTIONS (2)
  - Condition aggravated [Not Recovered/Not Resolved]
  - Off label use [Unknown]

NARRATIVE: CASE EVENT DATE: 20231227
